FAERS Safety Report 5679448-3 (Version None)
Quarter: 2008Q1

REPORT INFORMATION
  Report Type: 
  Country: None (occurrence: None)
  Receive Date: 20080321
  Receipt Date: 20080311
  Transmission Date: 20080703
  Serious: Yes (Hospitalization)
  Sender: FDA-Public Use
  Company Number: 2007AL002325

PATIENT
  Age: 16 Year
  Sex: Female

DRUGS (5)
  1. MIRTAZAPINE [Suspect]
     Indication: DEPRESSION
     Dosage: 30 MG; QD; PO
     Route: 048
     Dates: start: 20070101
  2. ARIPIPRAZOLE [Concomitant]
  3. RISPERIDONE [Concomitant]
  4. OLANZAPINE [Concomitant]
  5. LORAZEPAM [Concomitant]

REACTIONS (3)
  - DELUSION [None]
  - HALLUCINATION, AUDITORY [None]
  - PSYCHOTIC DISORDER [None]
